FAERS Safety Report 7006580-4 (Version None)
Quarter: 2010Q3

REPORT INFORMATION
  Report Type: 
  Country: None (occurrence: None)
  Receive Date: 20100921
  Receipt Date: 20100921
  Transmission Date: 20110219
  Serious: Yes (Hospitalization)
  Sender: FDA-Public Use
  Company Number: None

PATIENT
  Age: 84 Year
  Sex: Male
  Weight: 80 kg

DRUGS (1)
  1. AMOXICILLIN [Suspect]
     Indication: DENTAL CARE
     Dosage: 1 GM ONCE PO
     Route: 048
     Dates: start: 20100602, end: 20100602

REACTIONS (3)
  - DRUG ERUPTION [None]
  - PULMONARY OEDEMA [None]
  - PYREXIA [None]
